FAERS Safety Report 8405287-6 (Version None)
Quarter: 2012Q2

REPORT INFORMATION
  Report Type: 
  Country: None (occurrence: None)
  Receive Date: 20120603
  Receipt Date: 20120529
  Transmission Date: 20120825
  Serious: Yes (Other)
  Sender: FDA-Public Use
  Company Number: AT-AMGEN-AUTSP2012022374

PATIENT
  Age: 65 Year
  Sex: Female
  Weight: 63 kg

DRUGS (10)
  1. SERTRALINE HYDROCHLORIDE [Concomitant]
  2. FURON                              /00032601/ [Concomitant]
     Indication: HYPERTENSION
     Dosage: 40 MG, 2 TIMES/WK
     Route: 048
  3. PROLIA [Suspect]
     Indication: PRODUCT USED FOR UNKNOWN INDICATION
     Dosage: UNK
     Route: 058
     Dates: start: 20120322
  4. ALPRAZOLAM [Concomitant]
  5. RABEPRAZOLE SODIUM [Concomitant]
     Indication: GASTROOESOPHAGEAL REFLUX DISEASE
     Dosage: 20 MG, QD
     Route: 048
  6. TRAMADOL HYDROCHLORIDE [Concomitant]
  7. DIAMICRON [Concomitant]
  8. CANDESARTAN CILEXETIL [Concomitant]
     Indication: HYPERTENSION
     Dosage: 16 MG, QD
     Route: 048
  9. GLICLAZID +PHARMA [Concomitant]
     Indication: TYPE 2 DIABETES MELLITUS
     Dosage: 30 MG, BID
     Route: 048
  10. SPASMOLYT [Concomitant]
     Dosage: UNK UNK, BID
     Route: 048

REACTIONS (8)
  - RASH MACULAR [None]
  - SWELLING FACE [None]
  - PRURITUS [None]
  - SKIN EXFOLIATION [None]
  - DERMATITIS EXFOLIATIVE [None]
  - REFUSAL OF TREATMENT BY PATIENT [None]
  - OEDEMA PERIPHERAL [None]
  - AURICULAR SWELLING [None]
